FAERS Safety Report 20186635 (Version 2)
Quarter: 2022Q1

REPORT INFORMATION
  Report Type: Report from Study
  Country: CA (occurrence: CA)
  Receive Date: 20211215
  Receipt Date: 20220202
  Transmission Date: 20220423
  Serious: Yes (Death, Hospitalization)
  Sender: FDA-Public Use
  Company Number: CN-SA-SAC20211208001012

PATIENT
  Age: 64 Year
  Sex: Male
  Weight: 76.5 kg

DRUGS (18)
  1. ANTI-THYMOCYTE GLOBULIN (RABBIT) NOS [Suspect]
     Active Substance: LAPINE T-LYMPHOCYTE IMMUNE GLOBULIN
     Dosage: 750 MG
     Route: 042
     Dates: start: 20211107
  2. ANTI-THYMOCYTE GLOBULIN (RABBIT) NOS [Suspect]
     Active Substance: LAPINE T-LYMPHOCYTE IMMUNE GLOBULIN
     Dosage: 750 MG
     Route: 042
     Dates: start: 20211108
  3. ANTI-THYMOCYTE GLOBULIN (RABBIT) NOS [Suspect]
     Active Substance: LAPINE T-LYMPHOCYTE IMMUNE GLOBULIN
     Dosage: 750 MG
     Route: 042
     Dates: start: 20211109
  4. ANTI-THYMOCYTE GLOBULIN (RABBIT) NOS [Suspect]
     Active Substance: LAPINE T-LYMPHOCYTE IMMUNE GLOBULIN
     Dosage: 750 MG
     Route: 042
     Dates: start: 20211111
  5. METHOTREXATE [Suspect]
     Active Substance: METHOTREXATE
     Dosage: 82 MG
     Route: 042
     Dates: start: 20211112
  6. METHOTREXATE [Suspect]
     Active Substance: METHOTREXATE
     Dosage: 82 MG
     Route: 042
     Dates: start: 20211114
  7. METHOTREXATE [Suspect]
     Active Substance: METHOTREXATE
     Dosage: 82 MG
     Route: 042
     Dates: start: 20211117
  8. METHOTREXATE [Suspect]
     Active Substance: METHOTREXATE
     Dosage: 82 MG
     Route: 042
     Dates: start: 20211122
  9. CYCLOSPORINE [Suspect]
     Active Substance: CYCLOSPORINE
     Dosage: 150 MG, BID
     Route: 048
  10. CYCLOSPORINE [Suspect]
     Active Substance: CYCLOSPORINE
     Dosage: 75 MG, BID
     Route: 042
     Dates: start: 20211202
  11. BISOPROLOL [Concomitant]
     Active Substance: BISOPROLOL
     Dosage: 5 MG, QD
     Dates: start: 20211129
  12. LEVETIRACETAM [Concomitant]
     Active Substance: LEVETIRACETAM
     Dosage: 500 MG, BID
     Dates: start: 20211129
  13. TAMSULOSIN [Concomitant]
     Active Substance: TAMSULOSIN
     Dosage: 0.4 MG, QD
     Dates: start: 20211129
  14. URSODIOL [Concomitant]
     Active Substance: URSODIOL
     Dosage: 250 MG, TID
     Dates: start: 20211129
  15. VALACYCLOVIR [Concomitant]
     Active Substance: VALACYCLOVIR HYDROCHLORIDE
     Dosage: 1000 MG, TID
     Dates: start: 20211129
  16. HYDROMORPHONE [Concomitant]
     Active Substance: HYDROMORPHONE
     Dosage: 0.5 MG
     Route: 042
     Dates: start: 20211203
  17. AZITHROMYCIN [Concomitant]
     Active Substance: AZITHROMYCIN
     Dosage: 250 MG, Q12H
     Dates: start: 20211205
  18. VANCOMYCIN [Concomitant]
     Active Substance: VANCOMYCIN
     Dosage: 1 G, Q12H
     Dates: start: 20211203

REACTIONS (1)
  - Paraesthesia [Fatal]

NARRATIVE: CASE EVENT DATE: 20211203
